FAERS Safety Report 11742008 (Version 1)
Quarter: 2015Q4

REPORT INFORMATION
  Report Type: Spontaneous
  Country: BR (occurrence: BR)
  Receive Date: 20151116
  Receipt Date: 20151116
  Transmission Date: 20160304
  Serious: Yes (Other)
  Sender: FDA-Public Use
  Company Number: BR-EISAI MEDICAL RESEARCH-EC-2015-011993

PATIENT
  Age: 74 Year
  Sex: Female

DRUGS (1)
  1. ERANZ [Suspect]
     Active Substance: DONEPEZIL HYDROCHLORIDE
     Indication: DEMENTIA ALZHEIMER^S TYPE
     Route: 048
     Dates: start: 20151106

REACTIONS (5)
  - Blood pressure fluctuation [Unknown]
  - Seizure [Unknown]
  - Somnolence [Unknown]
  - Salivary hypersecretion [Unknown]
  - Loss of consciousness [Unknown]

NARRATIVE: CASE EVENT DATE: 201511
